FAERS Safety Report 10209502 (Version 1)
Quarter: 2014Q2

REPORT INFORMATION
  Report Type: Spontaneous
  Country: US (occurrence: US)
  Receive Date: 20140601
  Receipt Date: 20140601
  Transmission Date: 20141212
  Serious: Yes (Death, Hospitalization)
  Sender: FDA-Public Use
  Company Number: US-BRISTOL-MYERS SQUIBB COMPANY-20817003

PATIENT
  Sex: 0

DRUGS (3)
  1. ELIQUIS [Suspect]
     Indication: ATRIAL FIBRILLATION
  2. PLAVIX [Concomitant]
  3. ASPIRIN [Concomitant]

REACTIONS (5)
  - Death [Fatal]
  - Stent placement [Unknown]
  - Pneumonia [Unknown]
  - Septic shock [Unknown]
  - Renal failure chronic [Unknown]
